FAERS Safety Report 17475135 (Version 1)
Quarter: 2020Q1

REPORT INFORMATION
  Report Type: Spontaneous
  Country: US (occurrence: US)
  Receive Date: 20200228
  Receipt Date: 20200228
  Transmission Date: 20200409
  Serious: No
  Sender: FDA-Public Use
  Company Number: US-ABBVIE-20K-163-3248575-00

PATIENT
  Age: 73 Year
  Sex: Male

DRUGS (4)
  1. ANDROGEL [Suspect]
     Active Substance: TESTOSTERONE
     Dosage: 3 (2.5 GRAM) PACKETS DAILY
     Route: 061
     Dates: start: 202001
  2. TESTOSTERONE. [Suspect]
     Active Substance: TESTOSTERONE
     Indication: HYPOGONADISM
     Dosage: 3 ( 2.5 GRAMS) PACKETS DAILY
     Route: 061
  3. ANDROGEL [Suspect]
     Active Substance: TESTOSTERONE
     Indication: HYPOGONADISM
     Dosage: 2 ( 2.5 GRAM) PACKETS DAILY
     Route: 061
     Dates: start: 201906, end: 202001
  4. TESTOSTERONE. [Suspect]
     Active Substance: TESTOSTERONE
     Dosage: 2 ( 2.5 GRAM) PACKETS DAILY
     Route: 061
     Dates: end: 201906

REACTIONS (2)
  - Blood testosterone decreased [Unknown]
  - Blood testosterone increased [Recovered/Resolved]

NARRATIVE: CASE EVENT DATE: 201912
